FAERS Safety Report 5231943-7 (Version None)
Quarter: 2007Q1

REPORT INFORMATION
  Report Type: 
  Country: None (occurrence: None)
  Receive Date: 20070206
  Receipt Date: 20070125
  Transmission Date: 20070707
  Serious: Yes (Other)
  Sender: FDA-Public Use
  Company Number: US-PFIZER INC-2007007617

PATIENT
  Sex: Female
  Weight: 92.5 kg

DRUGS (6)
  1. CHANTIX [Suspect]
     Indication: SMOKING CESSATION THERAPY
     Dates: start: 20070117, end: 20070123
  2. BENADRYL [Suspect]
     Indication: DRUG HYPERSENSITIVITY
  3. PREDNISONE [Concomitant]
  4. LEVAQUIN [Concomitant]
  5. TOPAMAX [Concomitant]
  6. ZOLOFT [Concomitant]

REACTIONS (12)
  - FEELING JITTERY [None]
  - GAIT DISTURBANCE [None]
  - HEART RATE INCREASED [None]
  - HYPERTENSION [None]
  - HYPOAESTHESIA ORAL [None]
  - ILL-DEFINED DISORDER [None]
  - LIMB DISCOMFORT [None]
  - PRURITUS [None]
  - PSYCHOMOTOR HYPERACTIVITY [None]
  - SLEEP DISORDER [None]
  - TREMOR [None]
  - WEIGHT DECREASED [None]
